FAERS Safety Report 7554722-4 (Version None)
Quarter: 2011Q2

REPORT INFORMATION
  Report Type: 
  Country: None (occurrence: None)
  Receive Date: 20110615
  Receipt Date: 20110615
  Transmission Date: 20111010
  Serious: No
  Sender: FDA-Public Use
  Company Number: None

PATIENT
  Age: 60 Year
  Sex: Male

DRUGS (2)
  1. HYDRALAZINE HCL [Suspect]
     Dates: start: 20100407, end: 20100426
  2. VANCOMYCIN [Suspect]
     Dates: start: 20100317, end: 20100423

REACTIONS (9)
  - ASTHENIA [None]
  - BLOOD ALKALINE PHOSPHATASE INCREASED [None]
  - ASPARTATE AMINOTRANSFERASE INCREASED [None]
  - ALANINE AMINOTRANSFERASE INCREASED [None]
  - MALAISE [None]
  - BLOOD BILIRUBIN INCREASED [None]
  - LIVER INJURY [None]
  - WHITE BLOOD CELL COUNT INCREASED [None]
  - DRUG RASH WITH EOSINOPHILIA AND SYSTEMIC SYMPTOMS [None]
